FAERS Safety Report 12156379 (Version 8)
Quarter: 2016Q2

REPORT INFORMATION
  Report Type: Report from Study
  Country: CO (occurrence: CO)
  Receive Date: 20160307
  Receipt Date: 20160608
  Transmission Date: 20160815
  Serious: Yes (Hospitalization)
  Sender: FDA-Public Use
  Company Number: PHHY2016CO027130

PATIENT
  Age: 46 Year
  Sex: Female
  Weight: 72 kg

DRUGS (5)
  1. REVOLADE [Suspect]
     Active Substance: ELTROMBOPAG
     Indication: IMMUNE THROMBOCYTOPENIC PURPURA
     Dosage: 50 MG, QD
     Route: 048
     Dates: start: 20130122, end: 201511
  2. REVOLADE [Suspect]
     Active Substance: ELTROMBOPAG
     Dosage: 50 MG, QOD
     Route: 048
  3. LAMOTRIGINE. [Concomitant]
     Active Substance: LAMOTRIGINE
     Indication: EPILEPSY
     Dosage: 100 MG, Q12H
     Route: 048
     Dates: start: 20160313
  4. KEPPRA [Concomitant]
     Active Substance: LEVETIRACETAM
     Indication: EPILEPSY
     Dosage: 500 MG, Q8H
     Route: 065
  5. CLONAZEPAM. [Concomitant]
     Active Substance: CLONAZEPAM
     Indication: PRODUCT USED FOR UNKNOWN INDICATION
     Dosage: 0.25 DF, QD (2 MG)
     Route: 048

REACTIONS (12)
  - Haemorrhage [Unknown]
  - Rash [Unknown]
  - Epilepsy [Unknown]
  - Dizziness [Recovered/Resolved]
  - Platelet count decreased [Unknown]
  - Skin plaque [Unknown]
  - Fatigue [Recovered/Resolved]
  - Skin discolouration [Unknown]
  - Vaginal haemorrhage [Recovered/Resolved]
  - Dyspnoea [Unknown]
  - Asthenia [Unknown]
  - Syncope [Unknown]

NARRATIVE: CASE EVENT DATE: 20160409
